FAERS Safety Report 12831978 (Version 1)
Quarter: 2016Q4

REPORT INFORMATION
  Report Type: Spontaneous
  Country: BB (occurrence: BB)
  Receive Date: 20161010
  Receipt Date: 20161010
  Transmission Date: 20170207
  Serious: Yes (Death)
  Sender: FDA-Public Use
  Company Number: BB-ROCHE-1838212

PATIENT
  Sex: Female

DRUGS (1)
  1. METALYSE [Suspect]
     Active Substance: TENECTEPLASE
     Indication: THROMBOSIS
     Dosage: 0.5MG PER HOUR THROUGH SEPARATE I.V.
     Route: 042
     Dates: start: 201609

REACTIONS (1)
  - Death [Fatal]
